FAERS Safety Report 13925724 (Version 1)
Quarter: 2017Q3

REPORT INFORMATION
  Report Type: Report from Study
  Country: US (occurrence: US)
  Receive Date: 20170831
  Receipt Date: 20170831
  Transmission Date: 20171127
  Serious: Yes (Other)
  Sender: FDA-Public Use
  Company Number: US-BAYER-2017-112877

PATIENT
  Age: 68 Year
  Sex: Male

DRUGS (3)
  1. STIVARGA [Suspect]
     Active Substance: REGORAFENIB
     Indication: COLON CANCER
     Dosage: 80 MG, QD
     Route: 048
  2. STIVARGA [Suspect]
     Active Substance: REGORAFENIB
     Indication: HEPATIC CANCER
     Dosage: DAILY DOSE 160 MG
     Route: 048
     Dates: start: 201701, end: 2017
  3. STIVARGA [Suspect]
     Active Substance: REGORAFENIB
     Indication: SOFT TISSUE SARCOMA
     Dosage: 40 MG, QD
     Route: 048
     Dates: start: 2017

REACTIONS (6)
  - Neuropathy peripheral [None]
  - Pain in extremity [None]
  - Gait disturbance [None]
  - Dysphonia [None]
  - Skin exfoliation [None]
  - Dysphonia [None]

NARRATIVE: CASE EVENT DATE: 201706
